FAERS Safety Report 5008999-X (Version None)
Quarter: 2006Q2

REPORT INFORMATION
  Report Type: 
  Country: None (occurrence: None)
  Receive Date: 20060404
  Receipt Date: 20051110
  Transmission Date: 20061013
  Serious: No
  Sender: FDA-Public Use
  Company Number: US200511000399

PATIENT
  Age: 32 Year
  Sex: Female

DRUGS (2)
  1. CYMBALTA [Suspect]
     Indication: DEPRESSION
     Dosage: 30 MG
     Dates: start: 20051109
  2. ANTIBIOTICS [Concomitant]

REACTIONS (2)
  - NAUSEA [None]
  - RETCHING [None]
